FAERS Safety Report 6037948-0 (Version None)
Quarter: 2009Q1

REPORT INFORMATION
  Report Type: 
  Country: None (occurrence: None)
  Receive Date: 20090114
  Receipt Date: 20090114
  Transmission Date: 20090719
  Serious: Yes (Disabling)
  Sender: FDA-Public Use
  Company Number: None

PATIENT
  Age: 80 Year
  Sex: Female
  Weight: 74.8435 kg

DRUGS (1)
  1. RECLAST [Suspect]
     Indication: OSTEOARTHRITIS

REACTIONS (2)
  - ARTHRALGIA [None]
  - MYALGIA [None]
